FAERS Safety Report 10641278 (Version 1)
Quarter: 2014Q4

REPORT INFORMATION
  Report Type: Spontaneous
  Country: NZ (occurrence: NZ)
  Receive Date: 20141209
  Receipt Date: 20141209
  Transmission Date: 20150529
  Serious: Yes (Other)
  Sender: FDA-Public Use
  Company Number: NZ-BAYER-2014-177810

PATIENT
  Age: 29 Year
  Sex: Female

DRUGS (2)
  1. CARBAMAZEPIN [Concomitant]
     Active Substance: CARBAMAZEPINE
     Indication: ANTIPSYCHOTIC DRUG LEVEL THERAPEUTIC
  2. MIRENA [Suspect]
     Active Substance: LEVONORGESTREL
     Dosage: 20 ?G, CONT

REACTIONS (3)
  - Functional gastrointestinal disorder [None]
  - Gastric dilatation [None]
  - Pain [None]
